FAERS Safety Report 5001917-X (Version None)
Quarter: 2006Q2

REPORT INFORMATION
  Report Type: 
  Country: None (occurrence: None)
  Receive Date: 20060512
  Receipt Date: 20060512
  Transmission Date: 20061013
  Serious: Yes (Other)
  Sender: FDA-Public Use
  Company Number: None

PATIENT
  Sex: Female
  Weight: 63.9572 kg

DRUGS (1)
  1. LACTATED RINGER'S [Suspect]
     Indication: PREGNANCY
     Dosage: BOLUS  CONTINUOUS IV DRIP  {1HR
     Route: 041
     Dates: start: 20060508, end: 20060508

REACTIONS (5)
  - CHEST PAIN [None]
  - COUGH [None]
  - FEELING ABNORMAL [None]
  - PAIN [None]
  - RESPIRATORY DISORDER [None]
